FAERS Safety Report 5373498-2 (Version None)
Quarter: 2007Q2

REPORT INFORMATION
  Report Type: 
  Country: None (occurrence: None)
  Receive Date: 20070626
  Receipt Date: 20070626
  Transmission Date: 20071010
  Serious: No
  Sender: FDA-Public Use
  Company Number: None

PATIENT
  Age: 38 Year
  Sex: Male
  Weight: 74.8435 kg

DRUGS (2)
  1. CIPRO [Suspect]
     Indication: COLOSTOMY CLOSURE
     Dosage: 2X''S DAILY
     Dates: start: 20070616, end: 20070622
  2. CIPRO [Suspect]
     Indication: POUCHITIS
     Dosage: 2X''S DAILY
     Dates: start: 20070616, end: 20070622

REACTIONS (2)
  - HYPOAESTHESIA [None]
  - PARAESTHESIA [None]
